FAERS Safety Report 4596210-3 (Version None)
Quarter: 2005Q1

REPORT INFORMATION
  Report Type: 
  Country: None (occurrence: None)
  Receive Date: 20050225
  Receipt Date: 20050217
  Transmission Date: 20050727
  Serious: Yes (Hospitalization)
  Sender: FDA-Public Use
  Company Number: FABR-10945

PATIENT
  Age: 58 Year
  Sex: Male
  Weight: 74.4 kg

DRUGS (7)
  1. FABRAZYME [Suspect]
     Indication: FABRY'S DISEASE
     Dosage: 70 MG Q2WKS IV
     Route: 042
     Dates: start: 20030718
  2. CELLCEPT [Concomitant]
  3. BACTRIM [Concomitant]
  4. NEORAL [Concomitant]
  5. COUMADIN [Concomitant]
  6. LASIX [Concomitant]
  7. BETAPACE [Concomitant]

REACTIONS (6)
  - CARDIAC DISORDER [None]
  - CARDIAC VALVE DISEASE [None]
  - CONDITION AGGRAVATED [None]
  - DYSPNOEA EXERTIONAL [None]
  - HEART VALVE REPLACEMENT [None]
  - OEDEMA PERIPHERAL [None]
